FAERS Safety Report 13742293 (Version 2)
Quarter: 2017Q3

REPORT INFORMATION
  Report Type: Spontaneous
  Country: GB (occurrence: GB)
  Receive Date: 20170711
  Receipt Date: 20170802
  Transmission Date: 20171127
  Serious: Yes (Life-Threatening, Hospitalization, Other)
  Sender: FDA-Public Use
  Company Number: GB-JNJFOC-20170701146

PATIENT
  Age: 80 Year
  Sex: Female

DRUGS (2)
  1. IBUPROFEN. [Suspect]
     Active Substance: IBUPROFEN
     Route: 065
  2. IBUPROFEN. [Suspect]
     Active Substance: IBUPROFEN
     Indication: PRODUCT USED FOR UNKNOWN INDICATION
     Dosage: DOSE: 400 (UNIT UNSPECIFIED) TID, CUMULATIVE DOSE TO FIRST REACTION: 28800 (UNIT UNSPECIFIED)
     Route: 065
     Dates: start: 20140915, end: 20141009

REACTIONS (3)
  - Microcytic anaemia [Recovered/Resolved]
  - Upper gastrointestinal haemorrhage [Unknown]
  - Medication error [Unknown]

NARRATIVE: CASE EVENT DATE: 20141009
